FAERS Safety Report 7574890-8 (Version None)
Quarter: 2011Q2

REPORT INFORMATION
  Report Type: 
  Country: None (occurrence: None)
  Receive Date: 20110627
  Receipt Date: 20110531
  Transmission Date: 20111010
  Serious: Yes (Life-Threatening, Hospitalization, Other)
  Sender: FDA-Public Use
  Company Number: US-BAYER-201027319NA

PATIENT
  Age: 36 Year
  Sex: Female
  Weight: 105.67 kg

DRUGS (13)
  1. YAZ [Suspect]
     Indication: MENSTRUATION IRREGULAR
  2. TRIMOXIL [Concomitant]
     Indication: MULTIPLE ALLERGIES
  3. LISINOPRIL [Concomitant]
     Indication: CARDIAC DISORDER
     Dosage: 20 MG, UNK
  4. YAZ [Suspect]
     Indication: PREMENSTRUAL SYNDROME
  5. CITALOPRAM HYDROBROMIDE [Concomitant]
     Indication: BIPOLAR I DISORDER
     Dosage: 40 MG, UNK
     Dates: start: 20030101
  6. ATENOLOL [Concomitant]
     Indication: HYPERTENSION
  7. LEVOXYL [Concomitant]
     Indication: THYROID DISORDER
     Dosage: UNK
     Dates: start: 20030101
  8. PREVACID [Concomitant]
     Indication: GASTROOESOPHAGEAL REFLUX DISEASE
  9. RANITIDINE [Concomitant]
     Indication: GASTROOESOPHAGEAL REFLUX DISEASE
  10. IBUPROFEN [Concomitant]
     Dosage: UNK
     Dates: start: 20080101
  11. YASMIN [Suspect]
     Indication: PREMENSTRUAL SYNDROME
     Dosage: UNK UNK, UNK
     Route: 048
     Dates: start: 20080601
  12. YASMIN [Suspect]
     Indication: MENSTRUATION IRREGULAR
     Dosage: UNK
  13. CLARITIN [Concomitant]
     Indication: MULTIPLE ALLERGIES
     Dosage: UNK
     Dates: start: 20040101

REACTIONS (8)
  - DECREASED APPETITE [None]
  - CHEST PAIN [None]
  - NAUSEA [None]
  - CHOLECYSTITIS ACUTE [None]
  - DIARRHOEA [None]
  - CHOLELITHIASIS [None]
  - ABDOMINAL PAIN UPPER [None]
  - KIDNEY INFECTION [None]
